FAERS Safety Report 18353867 (Version 1)
Quarter: 2020Q4

REPORT INFORMATION
  Report Type: Spontaneous
  Country: JP (occurrence: JP)
  Receive Date: 20201006
  Receipt Date: 20201006
  Transmission Date: 20210114
  Serious: Yes (Death, Other)
  Sender: FDA-Public Use
  Company Number: JP-ROCHE-2689765

PATIENT
  Age: 44 Year
  Sex: Male

DRUGS (1)
  1. AVASTIN [Suspect]
     Active Substance: BEVACIZUMAB
     Indication: GLIOMA
     Dosage: DOSAGE IS UNCERTAIN AND ADMINISTERING FOR 2 MONTHS
     Route: 041
     Dates: start: 20141022, end: 201412

REACTIONS (2)
  - Glioma [Fatal]
  - Tumour haemorrhage [Unknown]

NARRATIVE: CASE EVENT DATE: 201411
